FAERS Safety Report 8495775-9 (Version None)
Quarter: 2012Q3

REPORT INFORMATION
  Report Type: 
  Country: None (occurrence: None)
  Receive Date: 20120709
  Receipt Date: 20120629
  Transmission Date: 20120928
  Serious: Yes (Other)
  Sender: FDA-Public Use
  Company Number: US-ROCHE-783575

PATIENT
  Sex: Male
  Weight: 49.94 kg

DRUGS (2)
  1. ACCUTANE [Suspect]
     Indication: ACNE
     Route: 065
     Dates: start: 20020201, end: 20020801
  2. ACCUTANE [Suspect]
     Route: 065
     Dates: start: 20030401, end: 20031001

REACTIONS (7)
  - COLITIS ULCERATIVE [None]
  - MENTAL DISORDER [None]
  - INFLAMMATORY BOWEL DISEASE [None]
  - CROHN'S DISEASE [None]
  - INTESTINAL OBSTRUCTION [None]
  - EMOTIONAL DISTRESS [None]
  - DEPRESSION [None]
